FAERS Safety Report 15787286 (Version 1)
Quarter: 2019Q1

REPORT INFORMATION
  Report Type: Spontaneous
  Country: US (occurrence: US)
  Receive Date: 20190103
  Receipt Date: 20190103
  Transmission Date: 20190417
  Serious: No
  Sender: FDA-Public Use
  Company Number: US-VIFOR (INTERNATIONAL) INC.-VIT-2018-12504

PATIENT
  Sex: Female

DRUGS (16)
  1. SERTRALINE [Concomitant]
     Active Substance: SERTRALINE HYDROCHLORIDE
  2. AMLODIPINE [Concomitant]
     Active Substance: AMLODIPINE BESYLATE
  3. DULERA [Concomitant]
     Active Substance: FORMOTEROL FUMARATE DIHYDRATE\MOMETASONE FUROATE
  4. SENSIPAR [Concomitant]
     Active Substance: CINACALCET HYDROCHLORIDE
  5. LORATADINE. [Concomitant]
     Active Substance: LORATADINE
  6. NYSTATIN. [Concomitant]
     Active Substance: NYSTATIN
  7. LYRICA [Concomitant]
     Active Substance: PREGABALIN
  8. QVAR [Concomitant]
     Active Substance: BECLOMETHASONE DIPROPIONATE
  9. FLUTICASONE. [Concomitant]
     Active Substance: FLUTICASONE
  10. CROMOLYN [Concomitant]
     Active Substance: CROMOLYN
  11. ACETAMINOPHEN. [Concomitant]
     Active Substance: ACETAMINOPHEN
  12. LEVEMIR [Concomitant]
     Active Substance: INSULIN DETEMIR
  13. VELTASSA [Suspect]
     Active Substance: PATIROMER
     Indication: HYPERKALAEMIA
     Route: 048
     Dates: end: 20181213
  14. ADVAIR HFA [Concomitant]
     Active Substance: FLUTICASONE PROPIONATE\SALMETEROL XINAFOATE
  15. TRIAMCINOLONE [Concomitant]
     Active Substance: TRIAMCINOLONE
  16. SSD [Concomitant]
     Active Substance: SILVER SULFADIAZINE

REACTIONS (1)
  - Diarrhoea [Unknown]
